FAERS Safety Report 14695795 (Version 1)
Quarter: 2018Q1

REPORT INFORMATION
  Report Type: Spontaneous
  Country: US (occurrence: US)
  Receive Date: 20180328
  Receipt Date: 20180328
  Transmission Date: 20180509
  Serious: Yes (Life-Threatening, Hospitalization)
  Sender: FDA-Public Use
  Company Number: None

PATIENT
  Age: 59 Year
  Sex: Male
  Weight: 72.2 kg

DRUGS (3)
  1. ALBUMIN 5% IV [Concomitant]
     Dates: start: 20180125
  2. PROTAMINE [Suspect]
     Active Substance: PROTAMINE
     Indication: HEPARIN NEUTRALISATION THERAPY
     Dosage: ?          OTHER FREQUENCY:DURING PROCEDURE;?
     Route: 040
     Dates: start: 20180125, end: 20180125
  3. CEFAZOLIN 2G IV [Concomitant]
     Dates: start: 20180125

REACTIONS (4)
  - Erythema [None]
  - Urticaria [None]
  - Haemodynamic instability [None]
  - Anaphylactic reaction [None]

NARRATIVE: CASE EVENT DATE: 20180125
